FAERS Safety Report 9583080 (Version 1)
Quarter: 2013Q4

REPORT INFORMATION
  Report Type: Spontaneous
  Country: US (occurrence: US)
  Receive Date: 20131002
  Receipt Date: 20131002
  Transmission Date: 20140711
  Serious: No
  Sender: FDA-Public Use
  Company Number: US-AMGEN-USASP2013044781

PATIENT
  Age: 57 Year
  Sex: Female
  Weight: 90.7 kg

DRUGS (11)
  1. ENBREL [Suspect]
     Indication: PRODUCT USED FOR UNKNOWN INDICATION
     Dosage: 50 MG, QWK
     Route: 058
  2. PLAQUENIL                          /00072602/ [Concomitant]
     Dosage: 200 MG, UNK
  3. OXCARBAZEPINE [Concomitant]
     Dosage: 150 MG, UNK
  4. LIPITOR [Concomitant]
     Dosage: 10 MG, UNK
  5. TRAMADOL HCL [Concomitant]
     Dosage: 50 MG, UNK
  6. CITALOPRAM [Concomitant]
     Dosage: 40 MG, UNK
  7. IBUPROFEN [Concomitant]
     Dosage: 100 MG, UNK
  8. METOPROLOL [Concomitant]
     Dosage: 50 MG, UNK
  9. METHYLPRED [Concomitant]
     Dosage: 40 MG/ML, UNK
  10. CALCIUM D                          /00944201/ [Concomitant]
     Dosage: UNK
  11. VOLTAREN                           /00372301/ [Concomitant]
     Dosage: UNK

REACTIONS (1)
  - Drug ineffective [Unknown]
